FAERS Safety Report 5739219-6 (Version None)
Quarter: 2008Q2

REPORT INFORMATION
  Report Type: 
  Country: None (occurrence: None)
  Receive Date: 20080515
  Receipt Date: 20080508
  Transmission Date: 20081010
  Serious: Yes (Other)
  Sender: FDA-Public Use
  Company Number: PHHY2008JP06419

PATIENT
  Age: 76 Year
  Sex: Female

DRUGS (3)
  1. NSAID'S [Concomitant]
     Route: 048
  2. ASPIRIN [Concomitant]
     Indication: ANGINA PECTORIS
  3. DICLOFENAC SODIUM [Suspect]
     Indication: CEREBRAL INFARCTION
     Route: 048

REACTIONS (9)
  - ANGINA PECTORIS [None]
  - ASPIRATION BONE MARROW [None]
  - ENDOSCOPY [None]
  - FATIGUE [None]
  - GASTRIC ULCER [None]
  - IRON DEFICIENCY ANAEMIA [None]
  - MUCOSAL INFLAMMATION [None]
  - OEDEMA MUCOSAL [None]
  - SMALL INTESTINE ULCER [None]
